FAERS Safety Report 9802782 (Version 1)
Quarter: 2014Q1

REPORT INFORMATION
  Report Type: Spontaneous
  Country: US (occurrence: US)
  Receive Date: 20140108
  Receipt Date: 20140108
  Transmission Date: 20141002
  Serious: No
  Sender: FDA-Public Use
  Company Number: US-009507513-1401USA002255

PATIENT
  Sex: Male

DRUGS (1)
  1. PEGINTRON [Suspect]
     Dosage: REDIPEN; 120 MICROGRAM, QW
     Route: 058
     Dates: start: 201311

REACTIONS (3)
  - Drug dose omission [Unknown]
  - Product quality control issue [Unknown]
  - No adverse event [Unknown]
